FAERS Safety Report 23277397 (Version 1)
Quarter: 2023Q4

REPORT INFORMATION
  Report Type: Spontaneous
  Country: JP (occurrence: JP)
  Receive Date: 20231208
  Receipt Date: 20231208
  Transmission Date: 20240110
  Serious: Yes (Hospitalization, Other)
  Sender: FDA-Public Use
  Company Number: JP-MSD-M2023-52506

PATIENT
  Sex: Female

DRUGS (3)
  1. KEYTRUDA [Suspect]
     Active Substance: PEMBROLIZUMAB
     Indication: Uterine cancer
     Dosage: 200 MILLIGRAM, Q3W
     Route: 041
     Dates: start: 202309, end: 2023
  2. KEYTRUDA [Suspect]
     Active Substance: PEMBROLIZUMAB
     Dosage: UNK
     Route: 041
     Dates: start: 2023
  3. LENVATINIB MESYLATE [Concomitant]
     Active Substance: LENVATINIB MESYLATE
     Indication: Uterine cancer
     Dosage: UNK
     Route: 048

REACTIONS (7)
  - Malignant neoplasm progression [Unknown]
  - Intestinal stenosis [Unknown]
  - Feeding disorder [Unknown]
  - Diarrhoea [Recovered/Resolved]
  - Blood potassium decreased [Unknown]
  - Palmar-plantar erythrodysaesthesia syndrome [Unknown]
  - Functional gastrointestinal disorder [Unknown]

NARRATIVE: CASE EVENT DATE: 20230101
